FAERS Safety Report 4668616-5 (Version None)
Quarter: 2005Q2

REPORT INFORMATION
  Report Type: 
  Country: None (occurrence: None)
  Receive Date: 20050519
  Receipt Date: 20050511
  Transmission Date: 20051028
  Serious: Yes (Death)
  Sender: FDA-Public Use
  Company Number: 163-20785-04100448

PATIENT
  Age: 77 Year
  Sex: Male

DRUGS (1)
  1. THALOMID [Suspect]
     Indication: MYELOFIBROSIS
     Dosage: 50 MG, QHS, ORAL
     Route: 048
     Dates: start: 20040624, end: 20040101

REACTIONS (4)
  - DISEASE PROGRESSION [None]
  - HEPATIC FAILURE [None]
  - MYELOFIBROSIS [None]
  - PANCYTOPENIA [None]
